FAERS Safety Report 5004121-4 (Version None)
Quarter: 2006Q2

REPORT INFORMATION
  Report Type: 
  Country: None (occurrence: None)
  Receive Date: 20060511
  Receipt Date: 20060503
  Transmission Date: 20061013
  Serious: Yes (Other)
  Sender: FDA-Public Use
  Company Number: 2006059172

PATIENT
  Sex: Male
  Weight: 72.5755 kg

DRUGS (1)
  1. LIPITOR [Suspect]
     Indication: BLOOD CHOLESTEROL
     Dosage: 20 MG, 1 IN 1 D
     Dates: start: 20040101

REACTIONS (3)
  - DRUG DOSE OMISSION [None]
  - HEADACHE [None]
  - KNEE ARTHROPLASTY [None]
